FAERS Safety Report 5912844-5 (Version None)
Quarter: 2008Q4

REPORT INFORMATION
  Report Type: 
  Country: None (occurrence: None)
  Receive Date: 20081008
  Receipt Date: 20080924
  Transmission Date: 20090506
  Serious: Yes (Death, Hospitalization, Other)
  Sender: FDA-Public Use
  Company Number: JP-ABBOTT-07P-087-0424403-00

PATIENT
  Age: 77 Year
  Sex: Male

DRUGS (11)
  1. LEUPROLIDE ACETATE [Suspect]
     Indication: PROSTATE CANCER STAGE IV
     Route: 058
     Dates: start: 20061024, end: 20071218
  2. LEUPROLIDE ACETATE [Suspect]
     Route: 058
     Dates: start: 20060830, end: 20060926
  3. LEUPROLIDE ACETATE [Suspect]
     Route: 058
  4. HARNAL D [Concomitant]
     Indication: BENIGN PROSTATIC HYPERPLASIA
     Route: 048
     Dates: end: 20070607
  5. ISOSORBIDE MONONITRATE [Concomitant]
     Indication: MYOCARDIAL INFARCTION
     Route: 048
  6. DILTIAZEM HYDROCHLORIDE [Concomitant]
     Indication: MYOCARDIAL INFARCTION
     Route: 048
  7. ACETYLSALICYLIC ACID SRT [Concomitant]
     Indication: MYOCARDIAL INFARCTION
     Route: 048
  8. ADALAT [Concomitant]
     Indication: HYPERTENSION
     Route: 048
  9. CHLORMADINONE ACETATE TAB [Concomitant]
     Indication: PROSTATE CANCER STAGE IV
     Route: 048
     Dates: start: 20070614, end: 20071004
  10. BICALUTAMIDE [Concomitant]
     Indication: PROSTATE CANCER STAGE IV
     Route: 048
     Dates: start: 20071010, end: 20080123
  11. DEXAMETHASONE [Concomitant]
     Indication: PROSTATE CANCER STAGE IV
     Route: 048
     Dates: start: 20080123, end: 20080818

REACTIONS (7)
  - CANCER PAIN [None]
  - FEBRILE INFECTION [None]
  - METASTASES TO BONE [None]
  - METASTASES TO LYMPH NODES [None]
  - PROSTATE CANCER [None]
  - URINARY RETENTION [None]
  - URINARY TRACT INFECTION [None]
